FAERS Safety Report 5867680-5 (Version None)
Quarter: 2008Q3

REPORT INFORMATION
  Report Type: 
  Country: None (occurrence: None)
  Receive Date: 20080902
  Receipt Date: 20080213
  Transmission Date: 20090109
  Serious: No
  Sender: FDA-Public Use
  Company Number: US-ABBOTT-08P-163-0434165-00

PATIENT
  Age: 18 Year
  Sex: Male

DRUGS (2)
  1. DEPAKOTE ER [Suspect]
     Indication: CONVULSION
     Route: 048
  2. UNKNOWN ANTI-SEIZURE MEDICATION [Concomitant]
     Indication: CONVULSION

REACTIONS (2)
  - DYSPHAGIA [None]
  - ILL-DEFINED DISORDER [None]
